FAERS Safety Report 17006932 (Version 1)
Quarter: 2019Q4

REPORT INFORMATION
  Report Type: Spontaneous
  Country: US (occurrence: US)
  Receive Date: 20191106
  Receipt Date: 20191106
  Transmission Date: 20200122
  Serious: No
  Sender: FDA-Public Use
  Company Number: None

PATIENT
  Age: 43 Year
  Sex: Female
  Weight: 70.03 kg

DRUGS (2)
  1. FERRLECIT [Suspect]
     Active Substance: SODIUM FERRIC GLUCONATE COMPLEX
     Dosage: ?          OTHER FREQUENCY:OVER 1 HOUR;?
     Route: 042
  2. FERRLECIT [Concomitant]
     Active Substance: SODIUM FERRIC GLUCONATE COMPLEX
     Dates: start: 20191103, end: 20191103

REACTIONS (4)
  - Blister [None]
  - Pain in extremity [None]
  - Swelling face [None]
  - Burning sensation [None]

NARRATIVE: CASE EVENT DATE: 20191103
